FAERS Safety Report 5642047-3 (Version None)
Quarter: 2008Q1

REPORT INFORMATION
  Report Type: 
  Country: None (occurrence: None)
  Receive Date: 20080225
  Receipt Date: 20080208
  Transmission Date: 20080703
  Serious: Yes (Hospitalization)
  Sender: FDA-Public Use
  Company Number: DSA_31428_2008

PATIENT
  Sex: Female

DRUGS (16)
  1. TAVOR /00273201/ (TAVOR - LORAZEPAM) (0.5 MG, 1 MG, 0.5 MG) [Suspect]
     Indication: DRUG USE FOR UNKNOWN INDICATION
     Dosage: (0.5 MG QD ORAL), (1 MG QD ORAL), (0.5 MG QD ORAL)
     Route: 048
     Dates: start: 20071010, end: 20071010
  2. TAVOR /00273201/ (TAVOR - LORAZEPAM) (0.5 MG, 1 MG, 0.5 MG) [Suspect]
     Indication: DRUG USE FOR UNKNOWN INDICATION
     Dosage: (0.5 MG QD ORAL), (1 MG QD ORAL), (0.5 MG QD ORAL)
     Route: 048
     Dates: start: 20071012, end: 20071012
  3. TAVOR /00273201/ (TAVOR - LORAZEPAM) (0.5 MG, 1 MG, 0.5 MG) [Suspect]
     Indication: DRUG USE FOR UNKNOWN INDICATION
     Dosage: (0.5 MG QD ORAL), (1 MG QD ORAL), (0.5 MG QD ORAL)
     Route: 048
     Dates: start: 20071013
  4. SEROQUEL [Suspect]
     Dosage: SEE IMAGE, ORAL
     Route: 048
     Dates: start: 20071004, end: 20071004
  5. SEROQUEL [Suspect]
     Dosage: SEE IMAGE, ORAL
     Route: 048
     Dates: start: 20071005, end: 20071005
  6. SEROQUEL [Suspect]
     Dosage: SEE IMAGE, ORAL
     Route: 048
     Dates: start: 20071006, end: 20071007
  7. SEROQUEL [Suspect]
     Dosage: SEE IMAGE, ORAL
     Route: 048
     Dates: start: 20071008, end: 20071008
  8. SEROQUEL [Suspect]
     Dosage: SEE IMAGE, ORAL
     Route: 048
     Dates: start: 20071009, end: 20071010
  9. SEROQUEL [Suspect]
     Dosage: SEE IMAGE, ORAL
     Route: 048
     Dates: start: 20071011, end: 20071011
  10. SEROQUEL [Suspect]
     Dosage: SEE IMAGE, ORAL
     Route: 048
     Dates: start: 20071012, end: 20071012
  11. ARICEPT [Suspect]
     Indication: DRUG USE FOR UNKNOWN INDICATION
     Dosage: (5 MG QD ORAL)
     Dates: start: 20071010, end: 20071011
  12. TRIAMTERENE AND HYDROCHLOROTHIAZIDE [Concomitant]
  13. BISOPROLOL FUMARATE [Concomitant]
  14. DEXIUM [Concomitant]
  15. VENOSTASIN [Concomitant]
  16. OVESTIN [Concomitant]

REACTIONS (6)
  - DEPRESSED LEVEL OF CONSCIOUSNESS [None]
  - DIZZINESS [None]
  - FAECAL INCONTINENCE [None]
  - FALL [None]
  - MUSCULOSKELETAL STIFFNESS [None]
  - PSYCHOTIC DISORDER [None]
